FAERS Safety Report 9244312 (Version 2)
Quarter: 2013Q2

REPORT INFORMATION
  Report Type: Spontaneous
  Country: US (occurrence: US)
  Receive Date: 20130418
  Receipt Date: 20130418
  Transmission Date: 20140414
  Serious: Yes (Other)
  Sender: FDA-Public Use
  Company Number: US-RB-044352-12

PATIENT
  Age: 0 None
  Sex: Female

DRUGS (4)
  1. SUBUTEX [Suspect]
     Indication: DRUG DEPENDENCE
     Route: 064
     Dates: start: 201108, end: 20120309
  2. SUBOXONE UNSPECIFIED [Suspect]
     Indication: PRODUCT USED FOR UNKNOWN INDICATION
     Dosage: DOSING DETAILS UNKNOWN
     Route: 064
     Dates: start: 2011, end: 2011
  3. NICOTINE [Suspect]
     Indication: PRODUCT USED FOR UNKNOWN INDICATION
     Dosage: UNKNOWN DOSING DETAILS
     Route: 064
  4. PRENATAL VITAMINS [Suspect]
     Indication: PRODUCT USED FOR UNKNOWN INDICATION
     Dosage: DOSING DETAILS UNKNOWN
     Route: 064

REACTIONS (5)
  - Foetal exposure during pregnancy [Recovered/Resolved]
  - Twin pregnancy [Not Recovered/Not Resolved]
  - Drug withdrawal syndrome neonatal [Recovered/Resolved]
  - Premature baby [Recovered/Resolved]
  - Low birth weight baby [None]
